FAERS Safety Report 6141506-7 (Version None)
Quarter: 2009Q1

REPORT INFORMATION
  Report Type: 
  Country: None (occurrence: None)
  Receive Date: 20090331
  Receipt Date: 20090319
  Transmission Date: 20090719
  Serious: Yes (Other)
  Sender: FDA-Public Use
  Company Number: GXKR2009BE03465

PATIENT
  Age: 65 Year
  Sex: Female

DRUGS (4)
  1. CYCLOSPORINE [Suspect]
     Indication: IMMUNOSUPPRESSION
  2. MYCOPHENOLATE MOFETIL [Suspect]
     Indication: IMMUNOSUPPRESSION
     Dosage: 2000 MG, PER DAY, 1000 MG PER DAY;
  3. CORTICOSTEROIDS (NO INGREDIENTS/SUBSTANCES) [Suspect]
     Indication: IMMUNOSUPPRESSION
  4. VORICONAZOLE (VORICONAZOLE) [Suspect]
     Dosage: 2000 MG, BID, ORAL, 200 MG PER DAY, ORAL; 100 MG, PER DAY; ORAL
     Route: 048

REACTIONS (5)
  - CHOLESTASIS [None]
  - CYTOLYTIC HEPATITIS [None]
  - DRUG INTERACTION [None]
  - FUNGAL SKIN INFECTION [None]
  - SCEDOSPORIUM INFECTION [None]
